FAERS Safety Report 5670010-5 (Version None)
Quarter: 2008Q1

REPORT INFORMATION
  Report Type: 
  Country: None (occurrence: None)
  Receive Date: 20080317
  Receipt Date: 20080313
  Transmission Date: 20080703
  Serious: Yes (Hospitalization)
  Sender: FDA-Public Use
  Company Number: US-BOEHRINGER INGELHEIM GMBH, GERMANY-2008-DE-01625GD

PATIENT
  Sex: Female

DRUGS (2)
  1. MORPHINE [Suspect]
     Indication: BACK PAIN
     Route: 037
  2. DILAUDID [Suspect]
     Indication: BACK PAIN
     Route: 037

REACTIONS (3)
  - KYPHOSCOLIOSIS [None]
  - NAUSEA [None]
  - VOMITING [None]
